FAERS Safety Report 5190311-7 (Version None)
Quarter: 2006Q4

REPORT INFORMATION
  Report Type: 
  Country: None (occurrence: None)
  Receive Date: 20061222
  Receipt Date: 20061206
  Transmission Date: 20070319
  Serious: Yes (Hospitalization, Disabling)
  Sender: FDA-Public Use
  Company Number: 2006UW27155

PATIENT
  Age: 60 Year
  Sex: Female

DRUGS (5)
  1. NEXIUM [Suspect]
     Route: 048
     Dates: start: 20010601, end: 20060921
  2. NEXIUM [Suspect]
     Route: 048
     Dates: start: 20060921
  3. CARAFATE [Concomitant]
  4. STEROID [Concomitant]
  5. ANTIBIOTICS [Concomitant]

REACTIONS (8)
  - BRONCHITIS [None]
  - CHEST PAIN [None]
  - COUGH [None]
  - DECREASED APPETITE [None]
  - NAUSEA [None]
  - ORAL INTAKE REDUCED [None]
  - REFLUX OESOPHAGITIS [None]
  - RENAL FAILURE ACUTE [None]
